FAERS Safety Report 13943676 (Version 1)
Quarter: 2017Q3

REPORT INFORMATION
  Report Type: Spontaneous
  Country: None (occurrence: AT)
  Receive Date: 20170907
  Receipt Date: 20170907
  Transmission Date: 20171128
  Serious: Yes (Congenital Anomaly, Other)
  Sender: FDA-Public Use
  Company Number: AT-LABORATOIRE HRA PHARMA-2025626

PATIENT

DRUGS (1)
  1. ELLA [Suspect]
     Active Substance: ULIPRISTAL ACETATE
     Indication: EXPOSURE DURING PREGNANCY
     Route: 048
     Dates: start: 20160723, end: 20160723

REACTIONS (2)
  - Low birth weight baby [None]
  - Congenital anomaly [None]
